FAERS Safety Report 10175266 (Version 1)
Quarter: 2014Q2

REPORT INFORMATION
  Report Type: Spontaneous
  Country: US (occurrence: US)
  Receive Date: 20140515
  Receipt Date: 20140515
  Transmission Date: 20141212
  Serious: No
  Sender: FDA-Public Use
  Company Number: US-VIVUS-2014V1000126

PATIENT
  Age: 39 Year
  Sex: Female
  Weight: 136.2 kg

DRUGS (2)
  1. QSYMIA 3.75MG/23MG [Suspect]
     Indication: WEIGHT DECREASED
     Route: 048
     Dates: start: 20140225, end: 20140310
  2. ALBUTEROL [Concomitant]
     Indication: ASTHMA
     Dates: start: 1994

REACTIONS (1)
  - Fatigue [Unknown]
